FAERS Safety Report 4640005-9 (Version None)
Quarter: 2005Q2

REPORT INFORMATION
  Report Type: 
  Country: None (occurrence: None)
  Receive Date: 20050418
  Receipt Date: 20050314
  Transmission Date: 20051028
  Serious: Yes (Hospitalization)
  Sender: FDA-Public Use
  Company Number: 2005009152

PATIENT
  Age: 35 Year
  Sex: Female
  Weight: 56.6996 kg

DRUGS (5)
  1. XANAX [Suspect]
     Indication: TREMOR
     Dosage: 1.5 MG (0.5 MG,3 IN 1 D), ORAL
     Route: 048
     Dates: start: 19970101
  2. ALL OTHER THERAPEUTIC PRODUCTS (ALL OTHER THERAPEUTIC PRODUCTS) [Suspect]
     Indication: ILL-DEFINED DISORDER
  3. FENTANYL [Concomitant]
  4. ZOLPIDEM TARTRATE [Concomitant]
  5. PHENOBARBITAL TAB [Concomitant]

REACTIONS (8)
  - ABDOMINAL PAIN UPPER [None]
  - CHOLECYSTECTOMY [None]
  - DRUG EXPOSURE DURING PREGNANCY [None]
  - PREGNANCY [None]
  - PREMATURE BABY [None]
  - SMALL FOR DATES BABY [None]
  - VOMITING [None]
  - WEIGHT INCREASED [None]
